FAERS Safety Report 5786096-3 (Version None)
Quarter: 2008Q2

REPORT INFORMATION
  Report Type: 
  Country: None (occurrence: None)
  Receive Date: 20080620
  Receipt Date: 20080620
  Transmission Date: 20081010
  Serious: Yes (Hospitalization)
  Sender: FDA-Public Use
  Company Number: None

PATIENT
  Age: 71 Year
  Sex: Male
  Weight: 73.48 kg

DRUGS (2)
  1. IMIPENEM AND CILASTATIN SODIUM [Suspect]
     Indication: CHOLECYSTITIS
     Dosage: 500 MG QID IV
     Route: 042
     Dates: start: 20080430, end: 20080504
  2. IMIPENEM AND CILASTATIN SODIUM [Suspect]
     Indication: UROSEPSIS
     Dosage: 500 MG QID IV
     Route: 042
     Dates: start: 20080430, end: 20080504

REACTIONS (1)
  - GRAND MAL CONVULSION [None]
